FAERS Safety Report 6602152-1 (Version None)
Quarter: 2010Q1

REPORT INFORMATION
  Report Type: 
  Country: None (occurrence: None)
  Receive Date: 20100225
  Receipt Date: 20100216
  Transmission Date: 20100710
  Serious: Yes (Other)
  Sender: FDA-Public Use
  Company Number: PHHY2010TR08387

PATIENT
  Sex: Male
  Weight: 82 kg

DRUGS (3)
  1. CERTICAN [Suspect]
     Indication: RENAL TRANSPLANT
     Dosage: UNK
     Dates: start: 20100120, end: 20100209
  2. DIOVAN [Concomitant]
     Dosage: 80 MG, UNK
  3. CELLCEPT [Concomitant]
     Dosage: UNK
     Dates: start: 20020101

REACTIONS (4)
  - BLOOD CREATININE INCREASED [None]
  - HAEMOGLOBIN DECREASED [None]
  - PRURITUS [None]
  - URTICARIA [None]
